FAERS Safety Report 11813468 (Version 3)
Quarter: 2015Q4

REPORT INFORMATION
  Report Type: Spontaneous
  Country: HU (occurrence: HU)
  Receive Date: 20151209
  Receipt Date: 20151222
  Transmission Date: 20160305
  Serious: Yes (Other)
  Sender: FDA-Public Use
  Company Number: PHHY2015HU160632

PATIENT
  Age: 42 Year
  Sex: Female

DRUGS (5)
  1. SUNITINIB [Suspect]
     Active Substance: SUNITINIB
     Indication: GASTRIC CANCER
     Route: 065
  2. LEVOTHYROXINE. [Concomitant]
     Active Substance: LEVOTHYROXINE
     Indication: PRODUCT USED FOR UNKNOWN INDICATION
     Route: 065
  3. ZOMETA [Suspect]
     Active Substance: ZOLEDRONIC ACID
     Indication: GASTRIC CANCER
     Dosage: UNK
     Route: 042
     Dates: start: 2012
  4. ZOMETA [Suspect]
     Active Substance: ZOLEDRONIC ACID
     Indication: HEPATIC CANCER METASTATIC
  5. SUNITINIB [Suspect]
     Active Substance: SUNITINIB
     Indication: HEPATIC CANCER METASTATIC

REACTIONS (6)
  - Wound [Recovered/Resolved]
  - Tooth disorder [Recovered/Resolved]
  - Impaired healing [Recovered/Resolved]
  - Osteonecrosis of jaw [Recovered/Resolved]
  - Product use issue [Unknown]
  - Post procedural oedema [Unknown]

NARRATIVE: CASE EVENT DATE: 201310
